FAERS Safety Report 14024911 (Version 2)
Quarter: 2017Q4

REPORT INFORMATION
  Report Type: Spontaneous
  Country: US (occurrence: US)
  Receive Date: 20170928
  Receipt Date: 20171016
  Transmission Date: 20180321
  Serious: No
  Sender: FDA-Public Use
  Company Number: US-SA-2017SA022473

PATIENT
  Age: 71 Year
  Sex: Female

DRUGS (1)
  1. AUBAGIO [Suspect]
     Active Substance: TERIFLUNOMIDE
     Indication: MULTIPLE SCLEROSIS
     Route: 048
     Dates: start: 201612

REACTIONS (4)
  - Bacterial infection [Unknown]
  - Diarrhoea [Unknown]
  - Urinary incontinence [Unknown]
  - Dry mouth [Unknown]

NARRATIVE: CASE EVENT DATE: 20170123
